FAERS Safety Report 4523630-5 (Version None)
Quarter: 2004Q4

REPORT INFORMATION
  Report Type: 
  Country: None (occurrence: None)
  Receive Date: 20041210
  Receipt Date: 20041210
  Transmission Date: 20050328
  Serious: Yes (Other)
  Sender: FDA-Public Use
  Company Number: None

PATIENT
  Age: 49 Year
  Sex: Female
  Weight: 67.586 kg

DRUGS (22)
  1. ZELNORM [Suspect]
     Indication: ABDOMINAL PAIN
     Dosage: ONE TAB PO BID
     Route: 048
     Dates: start: 20040819, end: 20041012
  2. ADVAIR DISKUS 100/50 [Concomitant]
  3. AMBIEN [Concomitant]
  4. CELLCEPT [Concomitant]
  5. CLARINEX [Concomitant]
  6. COUMADIN [Concomitant]
  7. CYCLOBENZAPRINE [Concomitant]
  8. FORTEO [Concomitant]
  9. HYDROCHLOROTHIAZIDE [Concomitant]
  10. HYDROZYCHLOROQUINE [Concomitant]
  11. IMITREX [Concomitant]
  12. LIPITOR [Concomitant]
  13. MAXALT-MLT [Concomitant]
  14. POTASSIUM CHLORIDE [Concomitant]
  15. PREDNISONE [Concomitant]
  16. PREVACID [Concomitant]
  17. PROPOXYPHENE/ACETAMINOPHEN (DARVOCET) [Concomitant]
  18. TOPAMAX [Concomitant]
  19. TRAMADOL HCL [Concomitant]
  20. VERAPAMIL [Concomitant]
  21. WELLBUTRIN XL [Concomitant]
  22. ZELNORM [Concomitant]

REACTIONS (7)
  - ABDOMINAL DISTENSION [None]
  - CONSTIPATION [None]
  - DIARRHOEA [None]
  - DRUG INTERACTION [None]
  - FAECAL INCONTINENCE [None]
  - FLATULENCE [None]
  - MUSCLE CRAMP [None]
